FAERS Safety Report 4517660-7 (Version None)
Quarter: 2004Q4

REPORT INFORMATION
  Report Type: 
  Country: None (occurrence: None)
  Receive Date: 20041203
  Receipt Date: 20041129
  Transmission Date: 20050328
  Serious: Yes (Other)
  Sender: FDA-Public Use
  Company Number: JP-JNJFOC-20041008685

PATIENT
  Age: 88 Year
  Sex: Female

DRUGS (3)
  1. RISPERDAL [Suspect]
     Indication: DRUG USE FOR UNKNOWN INDICATION
     Route: 049
  2. MIANSERIN HYDROCHLORIDE [Concomitant]
  3. LEVOMEPROMAZINE MALEATE [Concomitant]

REACTIONS (1)
  - THROMBOCYTOPENIA [None]
